FAERS Safety Report 9456713 (Version 2)
Quarter: 2013Q3

REPORT INFORMATION
  Report Type: Spontaneous
  Country: GB (occurrence: GB)
  Receive Date: 20130813
  Receipt Date: 20130826
  Transmission Date: 20140515
  Serious: Yes (Hospitalization)
  Sender: FDA-Public Use
  Company Number: GB-PFIZER INC-2013232502

PATIENT
  Age: 83 Year
  Sex: Female

DRUGS (4)
  1. ATORVASTATIN [Suspect]
     Dosage: 10 MG, UNK
     Route: 048
     Dates: end: 20130710
  2. ASPIRIN [Concomitant]
     Dosage: UNK
  3. CALCICHEW-D3 [Concomitant]
     Dosage: UNK
  4. RAMIPRIL [Concomitant]
     Dosage: UNK

REACTIONS (4)
  - Rhabdomyolysis [Recovered/Resolved]
  - Renal failure acute [Unknown]
  - Dehydration [Unknown]
  - Blood creatine phosphokinase increased [Recovered/Resolved]
